FAERS Safety Report 6559960-5 (Version None)
Quarter: 2010Q1

REPORT INFORMATION
  Report Type: 
  Country: None (occurrence: None)
  Receive Date: 20100129
  Receipt Date: 20090914
  Transmission Date: 20100710
  Serious: No
  Sender: FDA-Public Use
  Company Number: US-ABBOTT-09P-163-0597764-00

PATIENT
  Sex: Male
  Weight: 102.6 kg

DRUGS (7)
  1. HUMIRA [Suspect]
     Indication: RHEUMATOID ARTHRITIS
     Route: 058
     Dates: start: 20050101
  2. METHOTREXATE [Concomitant]
     Indication: RHEUMATOID ARTHRITIS
     Dosage: UNKNOWN
  3. FOLIC ACID [Concomitant]
     Indication: DRUG USE FOR UNKNOWN INDICATION
     Dosage: UNKNOWN
  4. PREDNISONE [Concomitant]
     Indication: DRUG USE FOR UNKNOWN INDICATION
     Dosage: UNKNOWN
  5. UNKNOWN ANTI-HYPERTENSIVE [Concomitant]
     Indication: DRUG USE FOR UNKNOWN INDICATION
     Dosage: UNKNOWN
  6. SALSALATE [Concomitant]
     Indication: ANTIINFLAMMATORY THERAPY
     Dosage: UNKNOWN
  7. HYDROXYCHLOR [Concomitant]
     Indication: RHEUMATOID ARTHRITIS
     Dosage: UNKNOWN

REACTIONS (1)
  - PNEUMONIA [None]
